FAERS Safety Report 14870542 (Version 3)
Quarter: 2019Q2

REPORT INFORMATION
  Report Type: Spontaneous
  Country: US (occurrence: US)
  Receive Date: 20180509
  Receipt Date: 20190506
  Transmission Date: 20190711
  Serious: No
  Sender: FDA-Public Use
  Company Number: US-PFIZER INC-2017555773

PATIENT
  Age: 47 Year
  Sex: Female

DRUGS (8)
  1. DOCETAXEL. [Suspect]
     Active Substance: DOCETAXEL
     Indication: INVASIVE DUCTAL BREAST CARCINOMA
     Dosage: UNK UNK, CYCLIC (EVERY WEEK)
     Dates: start: 201211, end: 201303
  2. DOCETAXEL. [Suspect]
     Active Substance: DOCETAXEL
     Dosage: 126 MG, CYCLIC EVERY 3 WEEKS, 6 CYCLES
     Dates: start: 20121120, end: 20130307
  3. TAXOTERE [Suspect]
     Active Substance: DOCETAXEL
     Dosage: 126 MG, CYCLIC EVERY 3 WEEKS, 6 CYCLES
     Dates: start: 20121120, end: 20130307
  4. REGLAN [Concomitant]
     Active Substance: METOCLOPRAMIDE HYDROCHLORIDE
     Dosage: UNK
     Dates: start: 2008
  5. PARAPLATIN [Concomitant]
     Active Substance: CARBOPLATIN
     Dosage: UNK (6 CYCLES)
     Dates: start: 20121120, end: 20130307
  6. HERCEPTIN [Concomitant]
     Active Substance: TRASTUZUMAB
     Dosage: UNK (6 CYCLES)
     Dates: start: 20121120, end: 20130307
  7. TAXOTERE [Suspect]
     Active Substance: DOCETAXEL
     Indication: INVASIVE DUCTAL BREAST CARCINOMA
     Dosage: UNK UNK, CYCLIC (EVERY WEEK)
     Dates: start: 201211, end: 201303
  8. DOCETAXEL. [Suspect]
     Active Substance: DOCETAXEL
     Indication: INVASIVE DUCTAL BREAST CARCINOMA
     Dosage: 126 MG, CYCLIC (EVERY 3 WEEKS, 6 CYCLES)
     Dates: start: 20121120, end: 20130307

REACTIONS (7)
  - Alopecia [Recovered/Resolved]
  - Anxiety [Unknown]
  - Madarosis [Not Recovered/Not Resolved]
  - Hair texture abnormal [Not Recovered/Not Resolved]
  - Hair colour changes [Not Recovered/Not Resolved]
  - Depression [Unknown]
  - Hair disorder [Not Recovered/Not Resolved]

NARRATIVE: CASE EVENT DATE: 201211
